FAERS Safety Report 7987256-3 (Version None)
Quarter: 2011Q4

REPORT INFORMATION
  Report Type: 
  Country: None (occurrence: None)
  Receive Date: 20111216
  Receipt Date: 20110324
  Transmission Date: 20120403
  Serious: No
  Sender: FDA-Public Use
  Company Number: US-BRISTOL-MYERS SQUIBB COMPANY-15636673

PATIENT

DRUGS (1)
  1. ABILIFY [Suspect]

REACTIONS (2)
  - BLOOD PRESSURE INCREASED [None]
  - GASTROINTESTINAL TUBE INSERTION [None]
